FAERS Safety Report 26064179 (Version 2)
Quarter: 2025Q4

REPORT INFORMATION
  Report Type: Spontaneous
  Country: US (occurrence: US)
  Receive Date: 20251119
  Receipt Date: 20251212
  Transmission Date: 20260118
  Serious: Yes (Hospitalization, Other)
  Sender: RANBAXY
  Company Number: US-SUN PHARMACEUTICAL INDUSTRIES LTD-2025R1-537292

PATIENT
  Age: 4 Year
  Sex: Male
  Weight: 25.1 kg

DRUGS (6)
  1. TEMOZOLOMIDE [Suspect]
     Active Substance: TEMOZOLOMIDE
     Indication: Glioma
     Dosage: 150 MILLIGRAM/SQ. METER, QD,(170 MG), DAILY (DAYS 1-5 OF 28-DAY CYCLES
     Route: 048
     Dates: start: 20250106
  2. TEMOZOLOMIDE [Suspect]
     Active Substance: TEMOZOLOMIDE
     Dosage: 200 MILLIGRAM/SQ. METER, DAILY, DAYS 1-5 OF 28-DAY CYCLES
     Route: 048
     Dates: start: 20250203
  3. LEVETIRACETAM [Concomitant]
     Active Substance: LEVETIRACETAM
     Indication: Seizure
     Dosage: UNK
     Route: 065
     Dates: start: 20241119
  4. DEXAMETHASONE [Concomitant]
     Active Substance: DEXAMETHASONE
     Indication: Swelling
     Dosage: UNK
     Route: 065
     Dates: start: 20241128, end: 20250527
  5. DEXAMETHASONE [Concomitant]
     Active Substance: DEXAMETHASONE
     Dosage: 0.5 MILLIGRAM, BID
     Route: 065
     Dates: start: 20250603
  6. ONDANSETRON [Concomitant]
     Active Substance: ONDANSETRON
     Indication: Nausea
     Dosage: UNK
     Route: 065
     Dates: start: 20241108

REACTIONS (4)
  - Vomiting [Recovered/Resolved]
  - Strabismus [Not Recovered/Not Resolved]
  - Optic glioma [Not Recovered/Not Resolved]
  - Headache [Recovered/Resolved]

NARRATIVE: CASE EVENT DATE: 20250611
